FAERS Safety Report 18734417 (Version 1)
Quarter: 2021Q1

REPORT INFORMATION
  Report Type: Spontaneous
  Country: US (occurrence: US)
  Receive Date: 20210112
  Receipt Date: 20210112
  Transmission Date: 20210419
  Serious: Yes (Hospitalization)
  Sender: FDA-Public Use
  Company Number: None

PATIENT
  Sex: Male

DRUGS (3)
  1. TACROLIMUS. [Suspect]
     Active Substance: TACROLIMUS
     Indication: RENAL TRANSPLANT
     Route: 048
     Dates: start: 20190917
  2. ESCITALOPRAM, PANTOPRAZOLE, LEVOTHYROXINE, CLOPIDOGREL, DIVALPROEX [Concomitant]
  3. PREDNISONE, HYDRALAZINE, ONDANSETRON, POTASSIUM CHLORIDE [Concomitant]

REACTIONS (1)
  - Hospitalisation [None]
